FAERS Safety Report 6027435-8 (Version None)
Quarter: 2009Q1

REPORT INFORMATION
  Report Type: 
  Country: None (occurrence: None)
  Receive Date: 20090105
  Receipt Date: 20081229
  Transmission Date: 20090719
  Serious: Yes (Hospitalization)
  Sender: FDA-Public Use
  Company Number: AU-MERCK-0808AUS00090

PATIENT
  Age: 67 Year
  Sex: Female

DRUGS (7)
  1. FOSAMAX [Suspect]
     Route: 048
     Dates: start: 20050801, end: 20080501
  2. FOSAMAX [Suspect]
     Route: 048
     Dates: start: 20080101
  3. CELECOXIB [Concomitant]
     Route: 065
  4. ESOMEPRAZOLE MAGNESIUM [Concomitant]
     Route: 065
  5. AMITRIPTYLINE HYDROCHLORIDE [Concomitant]
     Route: 065
  6. CHONDROITIN SULFATE SODIUM AND GLUCOSAMINE SULFATE [Concomitant]
     Route: 065
  7. TAURINE AND THIOCTIC ACID AND XANTHOPHYLL [Concomitant]
     Route: 065

REACTIONS (2)
  - PHARYNGEAL DISORDER [None]
  - TIBIA FRACTURE [None]
